FAERS Safety Report 7894466-2 (Version None)
Quarter: 2011Q4

REPORT INFORMATION
  Report Type: 
  Country: None (occurrence: None)
  Receive Date: 20111106
  Receipt Date: 20110816
  Transmission Date: 20120403
  Serious: No
  Sender: FDA-Public Use
  Company Number: US-AMGEN-USASP2011026626

PATIENT
  Age: 77 Year
  Sex: Female

DRUGS (3)
  1. TREXALL [Concomitant]
     Dosage: 4 MG, QWK
     Dates: start: 20090101
  2. ENBREL [Suspect]
     Indication: RHEUMATOID ARTHRITIS
     Dosage: 50 MG, QWK
     Dates: start: 20110125, end: 20110726
  3. ENBREL [Suspect]
     Dosage: 50 MG, QWK
     Dates: start: 20110125

REACTIONS (10)
  - NECK PAIN [None]
  - PAIN IN EXTREMITY [None]
  - FEELING HOT [None]
  - ERYTHEMA [None]
  - MYALGIA [None]
  - VISION BLURRED [None]
  - ARTHRITIS [None]
  - NERVE COMPRESSION [None]
  - MUSCULAR WEAKNESS [None]
  - ARTHRALGIA [None]
